FAERS Safety Report 4448606-8 (Version None)
Quarter: 2004Q3

REPORT INFORMATION
  Report Type: 
  Country: None (occurrence: None)
  Receive Date: 20040909
  Receipt Date: 20040827
  Transmission Date: 20050211
  Serious: Yes (Disabling)
  Sender: FDA-Public Use
  Company Number: 236503

PATIENT
  Age: 37 Year
  Sex: Female
  Weight: 45 kg

DRUGS (2)
  1. NORDITROPIN SIMPLE XX (SOMATROPIN) SOLUTION FOR INJECTION, 3.3MG/ML [Suspect]
     Indication: ASTHENIA
  2. LEVOTHYROXINE SODIUM [Concomitant]

REACTIONS (2)
  - ARTHRALGIA [None]
  - MYALGIA [None]
